FAERS Safety Report 25417849 (Version 1)
Quarter: 2025Q2

REPORT INFORMATION
  Report Type: Spontaneous
  Country: US (occurrence: None)
  Receive Date: 20250609
  Receipt Date: 20250609
  Transmission Date: 20250717
  Serious: Yes (Other)
  Sender: FDA-CTU
  Company Number: None

PATIENT
  Age: 54 Year
  Sex: Female
  Weight: 90.9 kg

DRUGS (1)
  1. RETATRUTIDE [Suspect]
     Active Substance: RETATRUTIDE
     Indication: Weight decreased
     Route: 058
     Dates: start: 20241015, end: 20250202

REACTIONS (4)
  - Bone disorder [None]
  - Vision blurred [None]
  - Palpitations [None]
  - Thrombosis [None]

NARRATIVE: CASE EVENT DATE: 20250202
